FAERS Safety Report 5116630-8 (Version None)
Quarter: 2006Q3

REPORT INFORMATION
  Report Type: 
  Country: None (occurrence: None)
  Receive Date: 20060928
  Receipt Date: 20060914
  Transmission Date: 20061208
  Serious: Yes (Hospitalization)
  Sender: FDA-Public Use
  Company Number: US-GLAXOSMITHKLINE-A0620107A

PATIENT
  Age: 82 Year
  Sex: Female
  Weight: 59.5 kg

DRUGS (5)
  1. REQUIP [Suspect]
     Indication: RESTLESS LEGS SYNDROME
     Dosage: .25MG UNKNOWN
     Route: 048
     Dates: start: 20060602, end: 20060828
  2. ATENOLOL [Concomitant]
     Dosage: 25MG PER DAY
  3. DURAHIST PE [Concomitant]
     Dosage: 1TAB TWICE PER DAY
  4. CHOLESTYRAMINE [Concomitant]
     Dosage: 4G VARIABLE DOSE
  5. LORAZEPAM [Concomitant]
     Dosage: .5MG AS REQUIRED

REACTIONS (3)
  - ANXIETY [None]
  - DYSPNOEA [None]
  - ROAD TRAFFIC ACCIDENT [None]
